FAERS Safety Report 5598494-1 (Version None)
Quarter: 2008Q1

REPORT INFORMATION
  Report Type: 
  Country: None (occurrence: None)
  Receive Date: 20080116
  Receipt Date: 20071207
  Transmission Date: 20080703
  Serious: Yes (Other)
  Sender: FDA-Public Use
  Company Number: 07H-163-0313516-00

PATIENT
  Age: 65 Year
  Sex: Female

DRUGS (8)
  1. ETOPOSIDE [Suspect]
     Indication: ACUTE MYELOID LEUKAEMIA
  2. DANUORUBICIN (DANUORUBICIN) [Suspect]
     Indication: ACUTE MYELOID LEUKAEMIA
  3. FLUDARABINE PHOSPHATE [Suspect]
     Indication: ACUTE MYELOID LEUKAEMIA
  4. CYTARABINE [Suspect]
     Indication: DRUG USE FOR UNKNOWN INDICATION
  5. CYCLOPHOSPHAMIDE [Suspect]
     Indication: DRUG USE FOR UNKNOWN INDICATION
  6. TACROLIMUS [Suspect]
     Indication: DRUG USE FOR UNKNOWN INDICATION
  7. MYCOPHENOLATE (MYCOPHENOLATE MOFETIL) [Suspect]
     Indication: DRUG USE FOR UNKNOWN INDICATION
  8. METHOTREXATE [Suspect]
     Indication: DRUG USE FOR UNKNOWN INDICATION

REACTIONS (2)
  - LIP AND/OR ORAL CAVITY CANCER [None]
  - SQUAMOUS CELL CARCINOMA [None]
